FAERS Safety Report 8914340 (Version 1)
Quarter: 2012Q4

REPORT INFORMATION
  Report Type: 
  Country: DE (occurrence: DE)
  Receive Date: 20121118
  Receipt Date: 20121118
  Transmission Date: 20130627
  Serious: Yes (Other)
  Sender: FDA-Public Use
  Company Number: DE-AMGEN-DEUSP2012073085

PATIENT
  Age: 67 Year
  Sex: Female

DRUGS (1)
  1. ENBREL [Suspect]
     Indication: PRODUCT USED FOR UNKNOWN INDICATION
     Dosage: 50 mg, weekly
     Route: 065
     Dates: start: 201110

REACTIONS (2)
  - Haematochezia [Unknown]
  - Abdominal pain upper [Unknown]
